FAERS Safety Report 10089919 (Version 1)
Quarter: 2014Q2

REPORT INFORMATION
  Report Type: Spontaneous
  Country: GB (occurrence: None)
  Receive Date: 20140417
  Receipt Date: 20140417
  Transmission Date: 20141212
  Serious: Yes (Other)
  Sender: FDA-Public Use
  Company Number: GB-DEXPHARM-20140159

PATIENT
  Age: 41 Year
  Sex: Female

DRUGS (2)
  1. OMEPRAZOLE [Suspect]
     Indication: PROPHYLAXIS AGAINST GASTROINTESTINAL ULCER
     Route: 048
     Dates: start: 20140312, end: 20140318
  2. NAPROXAN [Concomitant]

REACTIONS (6)
  - Agitation [None]
  - Anal candidiasis [None]
  - Confusional state [None]
  - Depression [None]
  - Suicidal ideation [None]
  - Vulvovaginal candidiasis [None]
